FAERS Safety Report 4813011-9 (Version None)
Quarter: 2005Q4

REPORT INFORMATION
  Report Type: 
  Country: None (occurrence: None)
  Receive Date: 20051028
  Receipt Date: 20050602
  Transmission Date: 20060501
  Serious: Yes (Other)
  Sender: FDA-Public Use
  Company Number: US-GLAXOSMITHKLINE-A0560960A

PATIENT
  Sex: Female

DRUGS (6)
  1. ADVAIR DISKUS 100/50 [Suspect]
     Indication: DRUG USE FOR UNKNOWN INDICATION
     Dosage: 1PUFF TWICE PER DAY
     Route: 055
     Dates: start: 20030101
  2. NEXIUM [Concomitant]
  3. MAXAIR [Concomitant]
  4. MUCINEX [Concomitant]
  5. NASONEX [Concomitant]
  6. FOSAMAX [Concomitant]

REACTIONS (2)
  - CATARACT [None]
  - OSTEOPOROSIS [None]
